FAERS Safety Report 14893447 (Version 1)
Quarter: 2018Q2

REPORT INFORMATION
  Report Type: Spontaneous
  Country: NL (occurrence: NL)
  Receive Date: 20180514
  Receipt Date: 20180514
  Transmission Date: 20180711
  Serious: Yes (Hospitalization)
  Sender: FDA-Public Use
  Company Number: NL-SHIRE-NL201809584

PATIENT

DRUGS (4)
  1. KIOVIG [Suspect]
     Active Substance: HUMAN IMMUNOGLOBULIN G
     Dosage: UNK
  2. KIOVIG [Suspect]
     Active Substance: HUMAN IMMUNOGLOBULIN G
     Indication: HYPOGAMMAGLOBULINAEMIA
     Dosage: 50 G, EVERY 3 WK
     Route: 065
     Dates: start: 20161117
  3. MAGNESIUM [Concomitant]
     Active Substance: MAGNESIUM
     Indication: GIARDIASIS
     Route: 065
  4. CALCIUM [Concomitant]
     Active Substance: CALCIUM
     Indication: GIARDIASIS
     Route: 065

REACTIONS (1)
  - Giardiasis [Unknown]

NARRATIVE: CASE EVENT DATE: 20180216
